FAERS Safety Report 10354454 (Version 4)
Quarter: 2014Q3

REPORT INFORMATION
  Report Type: Report from Study
  Country: JP (occurrence: JP)
  Receive Date: 20140731
  Receipt Date: 20140919
  Transmission Date: 20150326
  Serious: Yes (Hospitalization)
  Sender: FDA-Public Use
  Company Number: JP-SA-2014SA100075

PATIENT
  Age: 48 Year
  Sex: Female
  Weight: 62.3 kg

DRUGS (10)
  1. LANTUS INJ. CART [Concomitant]
     Dosage: BEFORE BEDTIME DOSE:27 UNIT(S)
     Route: 058
     Dates: start: 20140709
  2. TRAVATAN [Concomitant]
     Active Substance: TRAVOPROST
     Indication: GLAUCOMA
     Dosage: STRENGTH: 0.004%?DOSE: 1 OR 2 DROPS/ TIME
     Route: 047
  3. NOVORAPID [Concomitant]
     Active Substance: INSULIN ASPART
     Indication: TYPE 1 DIABETES MELLITUS
     Dosage: STRENGTH: 300 UNITS DOSE:8 UNIT(S)
     Route: 058
     Dates: start: 20040131
  4. LANTUS [Suspect]
     Active Substance: INSULIN GLARGINE
     Indication: TYPE 1 DIABETES MELLITUS
     Route: 058
     Dates: start: 20130710, end: 20140708
  5. LANTUS [Suspect]
     Active Substance: INSULIN GLARGINE
     Indication: TYPE 1 DIABETES MELLITUS
     Dosage: DOSE:27 UNIT(S)
     Route: 065
     Dates: start: 20140709
  6. PLAVIX [Concomitant]
     Active Substance: CLOPIDOGREL BISULFATE
     Indication: THROMBOSIS PROPHYLAXIS
     Route: 048
     Dates: start: 20120811
  7. SOLOSTAR [Concomitant]
     Active Substance: DEVICE
  8. BLOPRESS [Concomitant]
     Active Substance: CANDESARTAN CILEXETIL
     Indication: HYPERTENSION
     Dosage: STRENGTH: 8 MG
     Route: 048
     Dates: start: 20120811, end: 20140719
  9. ZOLPIDEM TARTRATE. [Concomitant]
     Active Substance: ZOLPIDEM TARTRATE
     Indication: INSOMNIA
     Dosage: 5 MG?BEFORE BEDTIME
     Route: 048
     Dates: start: 20130522
  10. URSODEOXYCHOLIC ACID [Concomitant]
     Active Substance: URSODIOL
     Indication: BILIARY CIRRHOSIS PRIMARY
     Dosage: 100 MG ^ZE^?AFTER EACH MEAL.
     Route: 048
     Dates: start: 20091019

REACTIONS (1)
  - Diabetic ketoacidosis [Recovered/Resolved]

NARRATIVE: CASE EVENT DATE: 20140720
